FAERS Safety Report 7707928-5 (Version None)
Quarter: 2011Q3

REPORT INFORMATION
  Report Type: 
  Country: None (occurrence: None)
  Receive Date: 20110824
  Receipt Date: 20110812
  Transmission Date: 20111222
  Serious: Yes (Other)
  Sender: FDA-Public Use
  Company Number: US-RB-031434-11

PATIENT
  Sex: Male

DRUGS (1)
  1. BUPRENORPHINE [Suspect]
     Indication: PRODUCT USED FOR UNKNOWN INDICATION
     Dosage: WAS GIVEN A TABLET FROM A FRIEND / FURTHER DOSING INFORMATION IS UNKNOWN
     Route: 065

REACTIONS (2)
  - SUICIDAL IDEATION [None]
  - SUBSTANCE ABUSE [None]
